FAERS Safety Report 4817352-0 (Version None)
Quarter: 2005Q4

REPORT INFORMATION
  Report Type: 
  Country: None (occurrence: None)
  Receive Date: 20051031
  Receipt Date: 20051018
  Transmission Date: 20060501
  Serious: Yes (Hospitalization, Other)
  Sender: FDA-Public Use
  Company Number: 2005134696

PATIENT
  Age: 14 Year
  Sex: Female
  Weight: 49.8957 kg

DRUGS (4)
  1. DRAMAMINE [Suspect]
     Indication: EUPHORIC MOOD
     Dosage: 4 TO 12 TABLETS ONCE, ORAL
     Route: 048
     Dates: start: 20050925, end: 20050925
  2. LORATADINE [Concomitant]
  3. MEDROXYPROGESTERONE ACETATE [Concomitant]
  4. SERTRALINE HCL [Concomitant]

REACTIONS (9)
  - AGGRESSION [None]
  - CONTUSION [None]
  - CONVULSION [None]
  - DIZZINESS [None]
  - FLASHBACK [None]
  - HEART RATE IRREGULAR [None]
  - INTENTIONAL OVERDOSE [None]
  - LOSS OF CONSCIOUSNESS [None]
  - SOMNOLENCE [None]
